FAERS Safety Report 25356755 (Version 1)
Quarter: 2025Q2

REPORT INFORMATION
  Report Type: Spontaneous
  Country: FR (occurrence: FR)
  Receive Date: 20250526
  Receipt Date: 20250526
  Transmission Date: 20250717
  Serious: Yes (Hospitalization)
  Sender: ACCORD
  Company Number: None

PATIENT
  Age: 69 Year
  Sex: Female
  Weight: 51 kg

DRUGS (9)
  1. CARBOPLATIN [Suspect]
     Active Substance: CARBOPLATIN
     Indication: Metastatic bronchial carcinoma
     Dates: start: 20241219, end: 20241219
  2. PEMETREXED [Suspect]
     Active Substance: PEMETREXED
     Indication: Metastatic bronchial carcinoma
     Dates: start: 20241219, end: 20241219
  3. OSIMERTINIB [Suspect]
     Active Substance: OSIMERTINIB
     Indication: Metastatic bronchial carcinoma
     Dates: start: 20241209
  4. PYRIDOSTIGMINE BROMIDE [Concomitant]
     Active Substance: PYRIDOSTIGMINE BROMIDE
  5. ELIQUIS [Concomitant]
     Active Substance: APIXABAN
  6. PEMETREXED [Suspect]
     Active Substance: PEMETREXED
     Indication: Metastatic bronchial carcinoma
     Dates: start: 20250108, end: 20250108
  7. PEMETREXED [Suspect]
     Active Substance: PEMETREXED
     Indication: Metastatic bronchial carcinoma
     Dates: start: 20250128, end: 20250128
  8. CARBOPLATIN [Suspect]
     Active Substance: CARBOPLATIN
     Indication: Metastatic bronchial carcinoma
     Dates: start: 20250108, end: 20250108
  9. CARBOPLATIN [Suspect]
     Active Substance: CARBOPLATIN
     Indication: Metastatic bronchial carcinoma
     Dates: start: 20250128, end: 20250128

REACTIONS (1)
  - Systemic scleroderma [Not Recovered/Not Resolved]

NARRATIVE: CASE EVENT DATE: 20250101
